FAERS Safety Report 8673594 (Version 2)
Quarter: 2012Q4

REPORT INFORMATION
  Report Type: 
  Country: US (occurrence: US)
  Receive Date: 20120719
  Receipt Date: 20121019
  Transmission Date: 20130627
  Serious: Yes (Hospitalization)
  Sender: FDA-Public Use
  Company Number: US-BRISTOL-MYERS SQUIBB COMPANY-16631053

PATIENT
  Age: 76 Year
  Sex: Male

DRUGS (4)
  1. YERVOY [Suspect]
     Indication: METASTATIC MALIGNANT MELANOMA
     Dosage: 1DF =5mg/ml,200mg strngth: Yervoy 200mg/40ml
Qty: 1, Lot#918121, Exp:Apr2014
     Route: 042
     Dates: start: 20120411, end: 20120411
  2. LISINOPRIL [Concomitant]
  3. SIMVASTATIN [Concomitant]
     Dosage: 1 DF: 40 units NOS
  4. AVODART [Concomitant]

REACTIONS (1)
  - Hepatic function abnormal [Recovering/Resolving]
